FAERS Safety Report 23334538 (Version 1)
Quarter: 2023Q4

REPORT INFORMATION
  Report Type: Spontaneous
  Country: CA (occurrence: CA)
  Receive Date: 20231224
  Receipt Date: 20231224
  Transmission Date: 20240110
  Serious: Yes (Other)
  Sender: FDA-Public Use
  Company Number: CA-002147023-NVSC2023CA271100

PATIENT
  Sex: Female

DRUGS (7)
  1. LETROZOLE [Suspect]
     Active Substance: LETROZOLE
     Indication: Mesenteric neoplasm
     Dosage: 2.5 MG, QD
     Route: 065
     Dates: start: 20230801
  2. CARBOPLATIN [Suspect]
     Active Substance: CARBOPLATIN
     Indication: Mesenteric neoplasm
     Dosage: UNK, Q3W (CARBO/TAXEL X 6 CYCLES)
     Route: 065
     Dates: end: 20230721
  3. CARBOPLATIN [Suspect]
     Active Substance: CARBOPLATIN
     Dosage: UNK, Q4W
     Route: 065
     Dates: end: 20230301
  4. PACLITAXEL [Suspect]
     Active Substance: PACLITAXEL
     Indication: Mesenteric neoplasm
     Dosage: UNK, Q3W (CARBO/TAXEL X 6 CYCLES)
     Route: 065
     Dates: end: 20230721
  5. DOXORUBICIN HYDROCHLORIDE [Suspect]
     Active Substance: DOXORUBICIN HYDROCHLORIDE
     Indication: Mesenteric neoplasm
     Dosage: 40 MG/M2, Q4W
     Route: 065
     Dates: end: 20220110
  6. BISOPROLOL [Concomitant]
     Active Substance: BISOPROLOL\BISOPROLOL FUMARATE
     Indication: Product used for unknown indication
     Dosage: 2.5 MG
     Route: 065
  7. TRAMETINIB [Concomitant]
     Active Substance: TRAMETINIB
     Indication: Product used for unknown indication
     Dosage: UNK
     Route: 065

REACTIONS (2)
  - Disease progression [Unknown]
  - Therapy partial responder [Unknown]
